FAERS Safety Report 25301518 (Version 1)
Quarter: 2025Q2

REPORT INFORMATION
  Report Type: Spontaneous
  Country: US (occurrence: US)
  Receive Date: 20250512
  Receipt Date: 20250512
  Transmission Date: 20250716
  Serious: No
  Sender: UCB
  Company Number: US-UCBSA-2024049946

PATIENT
  Sex: Female
  Weight: 134 kg

DRUGS (1)
  1. CIMZIA [Suspect]
     Active Substance: CERTOLIZUMAB PEGOL
     Indication: Rheumatoid arthritis
     Dosage: 400 MILLIGRAM, EV 4 WEEKS
     Route: 058
     Dates: start: 202311, end: 2024

REACTIONS (5)
  - Viral infection [Recovered/Resolved]
  - Pain [Recovering/Resolving]
  - Nasal congestion [Recovered/Resolved]
  - Maternal exposure during pregnancy [Unknown]
  - Drug ineffective [Unknown]
